FAERS Safety Report 20927185 (Version 11)
Quarter: 2023Q1

REPORT INFORMATION
  Report Type: Report from Study
  Country: DE (occurrence: DE)
  Receive Date: 20220607
  Receipt Date: 20230214
  Transmission Date: 20230418
  Serious: Yes (Death, Life-Threatening, Hospitalization)
  Sender: FDA-Public Use
  Company Number: DE-BoehringerIngelheim-2022-BI-174876

PATIENT
  Age: 73 Year
  Sex: Female
  Weight: 80 kg

DRUGS (17)
  1. NINTEDANIB [Suspect]
     Active Substance: NINTEDANIB
     Indication: Lung adenocarcinoma
     Route: 048
     Dates: start: 20210626, end: 20210820
  2. DOCETAXEL [Suspect]
     Active Substance: DOCETAXEL
     Indication: Lung adenocarcinoma
     Dosage: 28 MG/M2 BODY SURFACE AREA, LIQUID
     Route: 042
     Dates: start: 20210625, end: 20210816
  3. ASPIRIN [Concomitant]
     Active Substance: ASPIRIN
     Indication: Product used for unknown indication
     Dosage: 1-0-0-0
  4. Promethazin neuraxpharm 25 mg [Concomitant]
     Indication: Product used for unknown indication
     Dosage: 1-0-1-0
  5. Vitamin D3 4.000 Hypoallerg [Concomitant]
     Indication: Product used for unknown indication
     Dosage: 1-0-0-0
  6. Montelukast AbZ 10 mg Filmtabletten [Concomitant]
     Indication: Product used for unknown indication
     Dosage: 0-0-1-0
  7. Simva Aristo 20 mg Filmtabletten [Concomitant]
     Indication: Product used for unknown indication
     Dosage: 0-0-1-0
  8. L Thyrox Hexal 25 [Concomitant]
     Indication: Product used for unknown indication
     Dosage: 1-0-0-0
  9. Novaminsulfon 500 - 1A Pharma [Concomitant]
     Indication: Product used for unknown indication
  10. Ondansetron-ratiopharm 8mg Schmerztabletten [Concomitant]
     Indication: Nausea
     Dosage: 1-0-1-0 - IN CASE OF NAUSEA FOR MAX. 5 DAYS (FIRST CHOICE)
     Dates: start: 20210318
  11. Vergentan 50 mg Tabletten [Concomitant]
     Indication: Nausea
     Dosage: 1-1-1-0 - IN CASE OF NAUSEA
  12. Dexamethason TAD 8 mg Tabletten [Concomitant]
     Indication: Product used for unknown indication
     Dosage: 1-0-1
     Dates: start: 20210822
  13. Dexamethason TAD 8 mg Tabletten [Concomitant]
     Dosage: 0-0-1 START DATE: 23-AUG-2021
  14. Aprepitant AL 125 mg Hartkapseln [Concomitant]
     Indication: Product used for unknown indication
  15. Aprepitant Zentiva 80 mg Hartkapseln [Concomitant]
     Indication: Nausea
     Dosage: 1-0-0
  16. VOMEX A Kinder-Suppositorien 40 [Concomitant]
     Indication: Nausea
     Dosage: 3X DAILY IF REQUIRED (SECOND CHOICE IN CASE OF NAUSEA)
  17. Olanzapin - 1A Pharma 5 mg Filmtabletten [Concomitant]
     Indication: Nausea
     Dosage: 0-0-0-1

REACTIONS (4)
  - Pericardial effusion [Fatal]
  - Metabolic acidosis [Fatal]
  - Dyspnoea [Not Recovered/Not Resolved]
  - Nausea [Recovered/Resolved]

NARRATIVE: CASE EVENT DATE: 20210726
